FAERS Safety Report 19441994 (Version 1)
Quarter: 2021Q2

REPORT INFORMATION
  Report Type: Spontaneous
  Country: US (occurrence: US)
  Receive Date: 20210621
  Receipt Date: 20210621
  Transmission Date: 20210717
  Serious: Yes (Other)
  Sender: FDA-Public Use
  Company Number: US-AMNEAL PHARMACEUTICALS-2021-AMRX-02175

PATIENT
  Age: 71 Year
  Sex: Male

DRUGS (1)
  1. RYTARY [Suspect]
     Active Substance: CARBIDOPA\LEVODOPA
     Indication: PARKINSON^S DISEASE
     Dosage: 3 CAPSULES, QID
     Route: 048
     Dates: start: 2017

REACTIONS (5)
  - Coordination abnormal [Not Recovered/Not Resolved]
  - Product quality issue [Unknown]
  - Therapeutic response shortened [Not Recovered/Not Resolved]
  - Dystonia [Not Recovered/Not Resolved]
  - Therapeutic product effect variable [Not Recovered/Not Resolved]

NARRATIVE: CASE EVENT DATE: 202106
